FAERS Safety Report 24788879 (Version 5)
Quarter: 2025Q2

REPORT INFORMATION
  Report Type: Spontaneous
  Country: CA (occurrence: CA)
  Receive Date: 20241230
  Receipt Date: 20250421
  Transmission Date: 20250716
  Serious: Yes (Hospitalization, Other)
  Sender: PFIZER
  Company Number: CA-PFIZER INC-202400329922

PATIENT
  Age: 23 Year
  Sex: Female

DRUGS (4)
  1. ABRILADA [Suspect]
     Active Substance: ADALIMUMAB-AFZB
     Indication: Psoriatic arthropathy
     Route: 058
     Dates: start: 20240130, end: 2024
  2. ABRILADA [Suspect]
     Active Substance: ADALIMUMAB-AFZB
     Route: 058
     Dates: start: 2024, end: 20241119
  3. CELEBREX [Concomitant]
     Active Substance: CELECOXIB
     Dates: start: 2019
  4. COLCHICINE [Concomitant]
     Active Substance: COLCHICINE
     Dates: start: 2019

REACTIONS (6)
  - Knee arthroplasty [Unknown]
  - Haemorrhage [Unknown]
  - Bronchitis [Unknown]
  - Drug ineffective [Unknown]
  - Post procedural complication [Unknown]
  - Impaired healing [Unknown]

NARRATIVE: CASE EVENT DATE: 20250101
